FAERS Safety Report 20201529 (Version 3)
Quarter: 2022Q1

REPORT INFORMATION
  Report Type: Spontaneous
  Country: JP (occurrence: None)
  Receive Date: 20211217
  Receipt Date: 20220104
  Transmission Date: 20220423
  Serious: Yes (Other)
  Sender: FDA-Public Use
  Company Number: 2021A804904

PATIENT
  Age: 26 Year
  Sex: Female

DRUGS (10)
  1. SYMBICORT [Suspect]
     Active Substance: BUDESONIDE\FORMOTEROL FUMARATE DIHYDRATE
     Indication: Asthma
     Dosage: 4 DF 30 DOSES,4 TO 8 TIMES DAILY
     Route: 055
     Dates: start: 20210701, end: 2021
  2. SYMBICORT [Suspect]
     Active Substance: BUDESONIDE\FORMOTEROL FUMARATE DIHYDRATE
     Indication: Asthma
     Dosage: 4 DF 30 DOSES,4 TO 8 TIMES DAILY
     Route: 055
     Dates: start: 20210701, end: 2021
  3. BREZTRI [Suspect]
     Active Substance: BUDESONIDE\FORMOTEROL\GLYCOPYRROLATE
     Indication: Emphysema
     Dosage: 4 DF, 5 TO 6 TIMES DAILY
     Route: 055
     Dates: start: 202111
  4. DEXTROMETHORPHAN AND PREPARATIONS [Concomitant]
     Indication: Nasopharyngitis
     Route: 048
     Dates: start: 20210701, end: 20210708
  5. DEXTROMETHORPHAN AND PREPARATIONS [Concomitant]
     Indication: Nasopharyngitis
     Route: 048
     Dates: start: 20201102, end: 20210709
  6. CARBOCYSTEINE [Concomitant]
     Active Substance: CARBOCYSTEINE
     Indication: Nasopharyngitis
     Route: 048
     Dates: start: 20210701, end: 20210708
  7. CARBOCYSTEINE [Concomitant]
     Active Substance: CARBOCYSTEINE
     Indication: Nasopharyngitis
     Route: 048
     Dates: start: 20201102
  8. CLARITHROMYCIN [Concomitant]
     Active Substance: CLARITHROMYCIN
     Indication: Nasopharyngitis
     Route: 048
     Dates: start: 20210703, end: 20210706
  9. SINGULAIR [Concomitant]
     Active Substance: MONTELUKAST SODIUM
     Indication: Nasopharyngitis
     Route: 048
     Dates: start: 20201102, end: 20210709
  10. XYZAL [Concomitant]
     Active Substance: LEVOCETIRIZINE DIHYDROCHLORIDE
     Indication: Nasopharyngitis
     Route: 048
     Dates: start: 20201102, end: 20210709

REACTIONS (4)
  - Emphysema [Unknown]
  - Palpitations [Recovered/Resolved]
  - Dyspnoea [Recovered/Resolved]
  - Dyspnoea [Recovered/Resolved]

NARRATIVE: CASE EVENT DATE: 20211101
